FAERS Safety Report 5710543-6 (Version None)
Quarter: 2008Q2

REPORT INFORMATION
  Report Type: 
  Country: None (occurrence: None)
  Receive Date: 20080415
  Receipt Date: 20080403
  Transmission Date: 20081010
  Serious: Yes (Other)
  Sender: FDA-Public Use
  Company Number: DSA_31671_2008

PATIENT
  Sex: Female

DRUGS (4)
  1. CARDIZEM [Suspect]
     Indication: BLOOD PRESSURE
     Dosage: 180 MG BID  TAKES AT 3PM AND 9PM)
     Dates: start: 20060101
  2. TENORMIN [Concomitant]
  3. COUMADIN [Concomitant]
  4. TYLENOL [Concomitant]

REACTIONS (23)
  - ABNORMAL DREAMS [None]
  - ALOPECIA [None]
  - ARTERITIS [None]
  - BLOOD PRESSURE INCREASED [None]
  - CONFUSIONAL STATE [None]
  - CONSTIPATION [None]
  - DARK CIRCLES UNDER EYES [None]
  - EPISTAXIS [None]
  - ERYTHEMA [None]
  - EYE DISORDER [None]
  - FATIGUE [None]
  - HALLUCINATION, VISUAL [None]
  - HEADACHE [None]
  - JOINT SWELLING [None]
  - LIP SWELLING [None]
  - MALAISE [None]
  - NAIL DISCOLOURATION [None]
  - NAIL DISCOMFORT [None]
  - NAIL DISORDER [None]
  - SKIN DISORDER [None]
  - SKIN EXFOLIATION [None]
  - VERBIGERATION [None]
  - VISUAL DISTURBANCE [None]
